FAERS Safety Report 15266738 (Version 2)
Quarter: 2018Q3

REPORT INFORMATION
  Report Type: Spontaneous
  Country: CN (occurrence: CN)
  Receive Date: 20180810
  Receipt Date: 20180830
  Transmission Date: 20181010
  Serious: Yes (Other)
  Sender: FDA-Public Use
  Company Number: CN-009507513-1808CHN001875

PATIENT
  Sex: Male

DRUGS (1)
  1. TIENAM [Suspect]
     Active Substance: CILASTATIN SODIUM\IMIPENEM
     Indication: INFECTION
     Dosage: INTRAVENOUS INFUSION
     Route: 041
     Dates: start: 2016

REACTIONS (1)
  - Drug-induced liver injury [Unknown]
